FAERS Safety Report 5937850-6 (Version None)
Quarter: 2008Q4

REPORT INFORMATION
  Report Type: 
  Country: None (occurrence: None)
  Receive Date: 20081031
  Receipt Date: 20081008
  Transmission Date: 20090506
  Serious: No
  Sender: FDA-Public Use
  Company Number: US-BAYER-200835241NA

PATIENT
  Age: 60 Year
  Sex: Female
  Weight: 95 kg

DRUGS (2)
  1. MAGNEVIST [Suspect]
     Indication: MUSCULAR WEAKNESS
     Dosage: TOTAL DAILY DOSE: 20 ML  UNIT DOSE: 100 ML
     Route: 042
     Dates: start: 20081007, end: 20081007
  2. VALIUM [Concomitant]

REACTIONS (2)
  - PRURITUS [None]
  - URTICARIA [None]
